FAERS Safety Report 18139473 (Version 2)
Quarter: 2020Q4

REPORT INFORMATION
  Report Type: Spontaneous
  Country: US (occurrence: US)
  Receive Date: 20200812
  Receipt Date: 20201001
  Transmission Date: 20210113
  Serious: Yes (Other)
  Sender: FDA-Public Use
  Company Number: US-BAYER-2020-158351

PATIENT
  Sex: Male

DRUGS (3)
  1. XOFIGO [Suspect]
     Active Substance: RADIUM RA-223 DICHLORIDE
     Indication: PROSTATE CANCER METASTATIC
     Dosage: UNK UNK, Q4WK
     Dates: start: 202006, end: 202006
  2. XOFIGO [Suspect]
     Active Substance: RADIUM RA-223 DICHLORIDE
     Indication: METASTASES TO BONE
     Dosage: UNK UNK, Q4WK
     Dates: start: 202005, end: 202005
  3. XOFIGO [Suspect]
     Active Substance: RADIUM RA-223 DICHLORIDE
     Indication: PROSTATE CANCER METASTATIC
     Dosage: UNK UNK, Q4WK
     Dates: start: 202004, end: 202004

REACTIONS (4)
  - Taste disorder [None]
  - Back pain [Not Recovered/Not Resolved]
  - Haematochezia [None]
  - Fatigue [None]

NARRATIVE: CASE EVENT DATE: 2020
